FAERS Safety Report 4879677-2 (Version None)
Quarter: 2006Q1

REPORT INFORMATION
  Report Type: 
  Country: None (occurrence: None)
  Receive Date: 20060113
  Receipt Date: 20060103
  Transmission Date: 20060701
  Serious: Yes (Life-Threatening, Hospitalization)
  Sender: FDA-Public Use
  Company Number: FR-BRISTOL-MYERS SQUIBB COMPANY-13237706

PATIENT
  Age: 82 Year
  Sex: Female

DRUGS (5)
  1. GLUCOVANCE [Suspect]
     Indication: DIABETES MELLITUS
     Route: 048
     Dates: end: 20051018
  2. LOPRIL TABS [Suspect]
     Indication: ESSENTIAL HYPERTENSION
     Route: 048
  3. TENORMIN [Suspect]
     Indication: ESSENTIAL HYPERTENSION
     Route: 048
     Dates: start: 20051012
  4. AUGMENTIN '125' [Concomitant]
     Indication: BRONCHOPNEUMONIA
     Route: 048
     Dates: start: 20051011
  5. OFLOCET [Concomitant]
     Indication: BRONCHOPNEUMONIA
     Route: 048
     Dates: start: 20051013

REACTIONS (3)
  - BRONCHOPNEUMONIA [None]
  - HYPOGLYCAEMIC COMA [None]
  - RENAL FAILURE [None]
